FAERS Safety Report 21103382 (Version 4)
Quarter: 2022Q3

REPORT INFORMATION
  Report Type: Report from Study
  Country: CN (occurrence: None)
  Receive Date: 20220720
  Receipt Date: 20220819
  Transmission Date: 20221027
  Serious: Yes (Death, Hospitalization)
  Sender: FDA-Public Use
  Company Number: CN-ROCHE-3139917

PATIENT
  Age: 53 Year
  Sex: Male
  Weight: 69.5 kg

DRUGS (24)
  1. BEVACIZUMAB [Suspect]
     Active Substance: BEVACIZUMAB
     Indication: Colorectal cancer recurrent
     Route: 042
     Dates: start: 20211223, end: 20220113
  2. BEVACIZUMAB [Suspect]
     Active Substance: BEVACIZUMAB
     Route: 042
     Dates: start: 20220211, end: 20220415
  3. BEVACIZUMAB [Suspect]
     Active Substance: BEVACIZUMAB
     Route: 042
     Dates: start: 20220527, end: 20220527
  4. CAPECITABINE [Suspect]
     Active Substance: CAPECITABINE
     Indication: Colorectal cancer recurrent
     Dosage: BID ON DAY1- DAY14 OF EACH CYCLE ORAL
     Route: 048
     Dates: start: 20211224, end: 20220113
  5. CAPECITABINE [Suspect]
     Active Substance: CAPECITABINE
     Dosage: ON DAY1- DAY14 OF EACH CYCLE IN ORAL
     Route: 048
     Dates: start: 20220211, end: 20220527
  6. OXALIPLATIN [Suspect]
     Active Substance: OXALIPLATIN
     Indication: Colorectal cancer recurrent
     Route: 041
     Dates: start: 20211224, end: 20220113
  7. OXALIPLATIN [Suspect]
     Active Substance: OXALIPLATIN
     Route: 041
     Dates: start: 20220211, end: 20220527
  8. AMLODIPINE [Concomitant]
     Active Substance: AMLODIPINE BESYLATE
     Indication: Hypertension
     Route: 048
     Dates: start: 20211231
  9. HYDROCHLOROTHIAZIDE [Concomitant]
     Active Substance: HYDROCHLOROTHIAZIDE
     Indication: Hypertension
     Route: 048
     Dates: start: 20211231
  10. ENTECAVIR [Concomitant]
     Active Substance: ENTECAVIR
     Indication: Chronic hepatitis B
     Route: 048
     Dates: start: 20211201
  11. METHYLPREDNISOLONE [Concomitant]
     Active Substance: METHYLPREDNISOLONE
     Indication: Pneumonitis
     Dosage: IVGTT
     Dates: start: 20220630, end: 20220703
  12. AMBROXOL [Concomitant]
     Active Substance: AMBROXOL
     Indication: Pneumonitis
     Route: 042
     Dates: start: 20220630, end: 20220704
  13. SULFAMETHOXAZOLE [Concomitant]
     Active Substance: SULFAMETHOXAZOLE
     Indication: Pneumonitis
     Route: 048
     Dates: start: 20220702
  14. SULFAMETHOXAZOLE [Concomitant]
     Active Substance: SULFAMETHOXAZOLE
     Dates: start: 20220705, end: 20220711
  15. MEROPENEM [Concomitant]
     Active Substance: MEROPENEM
     Indication: Pneumonitis
     Dates: start: 20220702
  16. MEROPENEM [Concomitant]
     Active Substance: MEROPENEM
     Dates: start: 20220704, end: 20220713
  17. CANCIDAS [Concomitant]
     Active Substance: CASPOFUNGIN ACETATE
     Dates: start: 20220704, end: 20220713
  18. HUMAN IMMUNOGLOBULIN G [Concomitant]
     Active Substance: HUMAN IMMUNOGLOBULIN G
     Dates: start: 20220705, end: 20220707
  19. ZYVOX [Concomitant]
     Active Substance: LINEZOLID
     Route: 041
     Dates: start: 20220711, end: 20220713
  20. ZYVOX [Concomitant]
     Active Substance: LINEZOLID
     Route: 048
     Dates: start: 20220711, end: 20220713
  21. CASPOFUNGIN [Concomitant]
     Active Substance: CASPOFUNGIN
     Dates: start: 20220704
  22. GLUTATHIONE [Concomitant]
     Active Substance: GLUTATHIONE
     Dates: start: 20220630, end: 20220704
  23. ALBUMIN HUMAN [Concomitant]
     Active Substance: ALBUMIN HUMAN
     Dates: start: 20220630, end: 20220704
  24. IMMUNE GLOBULIN NOS [Concomitant]
     Active Substance: IMMUNE GLOBULIN NOS
     Dates: start: 20220702, end: 20220703

REACTIONS (2)
  - Pneumonitis [Fatal]
  - Disease progression [Fatal]

NARRATIVE: CASE EVENT DATE: 20220415
